FAERS Safety Report 5834640-X (Version None)
Quarter: 2008Q3

REPORT INFORMATION
  Report Type: 
  Country: None (occurrence: None)
  Receive Date: 20080801
  Receipt Date: 20080722
  Transmission Date: 20090109
  Serious: Yes (Other)
  Sender: FDA-Public Use
  Company Number: 1419181-2008-0010

PATIENT
  Sex: Female

DRUGS (1)
  1. CHLORHEXIDINE GLUCONATE [Suspect]
     Indication: INFECTION PROPHYLAXIS
     Dosage: 3000MG DAILY TOPICAL
     Route: 061

REACTIONS (4)
  - BURKHOLDERIA CEPACIA INFECTION [None]
  - CULTURE URINE POSITIVE [None]
  - POOR QUALITY DRUG ADMINISTERED [None]
  - TRANSMISSION OF AN INFECTIOUS AGENT VIA A MEDICINAL PRODUCT [None]
